FAERS Safety Report 7906297-5 (Version None)
Quarter: 2011Q4

REPORT INFORMATION
  Report Type: 
  Country: None (occurrence: None)
  Receive Date: 20111109
  Receipt Date: 20111109
  Transmission Date: 20120403
  Serious: Yes (Disabling, Other)
  Sender: FDA-Public Use
  Company Number: None

PATIENT
  Age: 46 Year
  Sex: Female
  Weight: 72.5755 kg

DRUGS (1)
  1. METRONIDAZOLE [Suspect]
     Indication: CLOSTRIDIAL INFECTION
     Dosage: 500 MG 3 X DAY
     Dates: start: 20111003, end: 20111013

REACTIONS (10)
  - MUSCULOSKELETAL DISORDER [None]
  - VERTIGO [None]
  - PARAESTHESIA [None]
  - THINKING ABNORMAL [None]
  - BURNING SENSATION [None]
  - TREMOR [None]
  - DIZZINESS [None]
  - HYPOAESTHESIA [None]
  - SENSATION OF HEAVINESS [None]
  - HEADACHE [None]
